FAERS Safety Report 8161649-6 (Version None)
Quarter: 2012Q1

REPORT INFORMATION
  Report Type: 
  Country: None (occurrence: None)
  Receive Date: 20120224
  Receipt Date: 20120217
  Transmission Date: 20120608
  Serious: Yes (Hospitalization, Disabling)
  Sender: FDA-Public Use
  Company Number: GB-PFIZER INC-2012044210

PATIENT
  Age: 51 Year
  Sex: Female
  Weight: 66 kg

DRUGS (20)
  1. FLUDROCORTISONE [Concomitant]
  2. CYTARABINE [Suspect]
     Indication: ACUTE MYELOID LEUKAEMIA
     Dosage: 186 MG, UNK
     Route: 042
     Dates: start: 20111109, end: 20111109
  3. ESTRADIOL [Concomitant]
  4. ITRACONAZOLE [Concomitant]
  5. PREGABALIN [Concomitant]
  6. GABAPENTIN [Concomitant]
  7. ZOPICLONE [Concomitant]
  8. SANDO K [Concomitant]
  9. VITAMIN B 1-6-12 [Concomitant]
  10. METOCLOPRAMIDE [Concomitant]
  11. THIAMINE [Concomitant]
  12. ONDANSETRON [Concomitant]
  13. PARACETAMOL [Concomitant]
  14. ACICLOVIR [Concomitant]
  15. LANSOPRAZOLE [Concomitant]
  16. LORAZEPAM [Concomitant]
  17. CYTARABINE [Suspect]
     Dosage: 175 MG, UNK
     Route: 042
     Dates: start: 20111229, end: 20111229
  18. ALLOPURINOL [Concomitant]
  19. DAUNORUBICIN [Concomitant]
  20. MIDODRINE [Concomitant]

REACTIONS (3)
  - PARAESTHESIA [None]
  - NEUROPATHY PERIPHERAL [None]
  - MYALGIA [None]
